FAERS Safety Report 18537948 (Version 2)
Quarter: 2020Q4

REPORT INFORMATION
  Report Type: Other
  Country: JP (occurrence: JP)
  Receive Date: 20201124
  Receipt Date: 20201130
  Transmission Date: 20210114
  Serious: Yes (Death)
  Sender: FDA-Public Use
  Company Number: JP-ROCHE-2467606

PATIENT
  Age: 58 Year
  Sex: Female
  Weight: 54 kg

DRUGS (8)
  1. ACTEMRA [Suspect]
     Active Substance: TOCILIZUMAB
     Indication: ERDHEIM-CHESTER DISEASE
     Dosage: ON MAY/2017, MOST RECENT DOSE
     Route: 041
     Dates: start: 201701
  2. SULBACTAM [Concomitant]
     Active Substance: SULBACTAM
  3. AMPICILLIN [Concomitant]
     Active Substance: AMPICILLIN
  4. TEICOPLANIN [Concomitant]
     Active Substance: TEICOPLANIN
  5. CLADRIBINE. [Concomitant]
     Active Substance: CLADRIBINE
     Route: 041
  6. PREDNISONE. [Concomitant]
     Active Substance: PREDNISONE
  7. INTERFERON ALFA NOS [Concomitant]
     Active Substance: INTERFERON ALFA-2A OR INTERFERON ALFA-2B
  8. DEXAMETHASONE. [Concomitant]
     Active Substance: DEXAMETHASONE

REACTIONS (3)
  - Intentional product use issue [Unknown]
  - Off label use [Unknown]
  - Disease progression [Fatal]

NARRATIVE: CASE EVENT DATE: 201802
